FAERS Safety Report 5933835-4 (Version None)
Quarter: 2008Q4

REPORT INFORMATION
  Report Type: 
  Country: None (occurrence: None)
  Receive Date: 20081029
  Receipt Date: 20081021
  Transmission Date: 20090506
  Serious: Yes (Disabling, Other)
  Sender: FDA-Public Use
  Company Number: US-BAYER-200827544NA

PATIENT
  Age: 71 Year
  Sex: Female

DRUGS (7)
  1. CAMPATH [Suspect]
     Indication: CHRONIC LYMPHOCYTIC LEUKAEMIA
     Dosage: TOTAL DAILY DOSE: 30 MG
     Route: 058
     Dates: start: 20080620, end: 20080916
  2. NORVASC [Concomitant]
  3. ACYCLOVIR [Concomitant]
  4. CELEBREX [Concomitant]
  5. AMBIEN [Concomitant]
  6. ATIVAN [Concomitant]
  7. VALGANCICLOVIR HCL [Concomitant]

REACTIONS (6)
  - ABASIA [None]
  - DRY MOUTH [None]
  - MUCOSAL INFLAMMATION [None]
  - PRURITUS [None]
  - SKIN REACTION [None]
  - URTICARIA [None]
